FAERS Safety Report 9269073 (Version 3)
Quarter: 2013Q3

REPORT INFORMATION
  Report Type: Spontaneous
  Country: GB (occurrence: GB)
  Receive Date: 20130503
  Receipt Date: 20130802
  Transmission Date: 20140515
  Serious: Yes (Hospitalization, Other)
  Sender: FDA-Public Use
  Company Number: GB-AMGEN-GBRSP2013030289

PATIENT
  Age: 69 Year
  Sex: Female
  Weight: 58.4 kg

DRUGS (9)
  1. PROLIA [Suspect]
     Indication: OSTEOPOROSIS POSTMENOPAUSAL
     Dosage: 60 MG, Q6MO
     Route: 058
     Dates: start: 20110624, end: 2013
  2. PREDNISOLONE [Concomitant]
     Indication: RENAL TRANSPLANT
     Dosage: 5 MG, QD
     Dates: start: 2004
  3. TACROLIMUS [Concomitant]
     Dosage: 3.5 MG, QD
  4. OMEPRAZOLE [Concomitant]
     Dosage: 10 MG, QD
  5. DOXAZOSIN [Concomitant]
     Dosage: 6 MG, BID
  6. ASPIRIN [Concomitant]
     Dosage: 75 MG, QD
  7. CALCICHEW D3 [Concomitant]
     Dosage: 1.25 G, BID
  8. SENNA                              /00142201/ [Concomitant]
     Dosage: 7.5 MG/5 ML,
  9. MOVICOL                            /01625101/ [Concomitant]
     Dosage: UNK UNK, AS NECESSARY

REACTIONS (5)
  - Femur fracture [Recovering/Resolving]
  - Walking aid user [Unknown]
  - Umbilical hernia [Unknown]
  - Impaired healing [Unknown]
  - Fall [Unknown]
